FAERS Safety Report 9665309 (Version 2)
Quarter: 2013Q4

REPORT INFORMATION
  Report Type: Report from Study
  Country: NL (occurrence: NL)
  Receive Date: 20131101
  Receipt Date: 20131101
  Transmission Date: 20140711
  Serious: Yes (Hospitalization)
  Sender: FDA-Public Use
  Company Number: NL-ABBVIE-12P-114-0969294-00

PATIENT
  Age: 76 Year
  Sex: Male
  Weight: 75 kg

DRUGS (7)
  1. LUCRIN DEPOT 30 MG [Suspect]
     Indication: PROSTATE CANCER
     Route: 058
     Dates: start: 20091002, end: 20110905
  2. LUCRIN DEPOT 11.25 MG [Suspect]
     Indication: PROSTATE CANCER
     Route: 058
     Dates: start: 20120223
  3. ATORVASTATINE [Concomitant]
     Indication: HYPERCHOLESTEROLAEMIA
     Route: 048
     Dates: start: 200504
  4. CLOPIDOGREL [Concomitant]
     Indication: HYPERTENSION
     Route: 048
     Dates: start: 200504
  5. QUINAPRIL [Concomitant]
     Indication: HYPERTENSION
     Route: 048
     Dates: start: 200504
  6. CARBASALATE CALCIUM [Concomitant]
     Indication: ANTICOAGULANT THERAPY
     Route: 048
     Dates: start: 200504
  7. ALPRAZOLAM [Concomitant]
     Indication: HYPERCHOLESTEROLAEMIA
     Dosage: MAX 3 TIMES DAILY
     Route: 048
     Dates: start: 20131014

REACTIONS (6)
  - Lung disorder [Not Recovered/Not Resolved]
  - Injection site swelling [Unknown]
  - Hot flush [Not Recovered/Not Resolved]
  - Injection site induration [Recovered/Resolved]
  - Injection site induration [Not Recovered/Not Resolved]
  - Hyperventilation [Not Recovered/Not Resolved]
